FAERS Safety Report 4289358-4 (Version None)
Quarter: 2004Q1

REPORT INFORMATION
  Report Type: 
  Country: None (occurrence: None)
  Receive Date: 20040206
  Receipt Date: 20040202
  Transmission Date: 20041129
  Serious: Yes (Hospitalization)
  Sender: FDA-Public Use
  Company Number: 2003UW17047

PATIENT
  Age: 61 Year
  Sex: Female
  Weight: 63.5036 kg

DRUGS (16)
  1. SEROQUEL [Suspect]
     Indication: TARDIVE DYSKINESIA
     Dosage: 125 MG BID PO
     Route: 048
     Dates: start: 20031202, end: 20031214
  2. SEROQUEL [Suspect]
     Indication: TARDIVE DYSKINESIA
     Dosage: 100 MG BID PO
     Route: 048
     Dates: start: 20031009, end: 20031202
  3. INSULIN [Concomitant]
  4. SYNTHROID [Concomitant]
  5. ASPIRIN [Concomitant]
  6. TAMOXIFEN [Concomitant]
  7. KAOCHLOR [Concomitant]
  8. FERROUS SULFATE TAB [Concomitant]
  9. CALCIUM WITH VITAMIN D [Concomitant]
  10. FOLIC ACID [Concomitant]
  11. SOY ISOFLAVINE [Concomitant]
  12. BLACK COHOSH [Concomitant]
  13. ACTINAL [Concomitant]
  14. ZELNORM [Concomitant]
  15. PROCRIT [Concomitant]
  16. CLONAZEPAM [Concomitant]

REACTIONS (1)
  - ABDOMINAL COMPARTMENT SYNDROME [None]
